FAERS Safety Report 10724479 (Version 5)
Quarter: 2015Q2

REPORT INFORMATION
  Report Type: Spontaneous
  Country: US (occurrence: None)
  Receive Date: 20150115
  Receipt Date: 20150417
  Transmission Date: 20150821
  Serious: Yes (Other)
  Sender: FDA-Public Use
  Company Number: US-H14001-15-00036

PATIENT
  Age: 56 Year
  Sex: Female
  Weight: 83.9 kg

DRUGS (8)
  1. RITALIN (METHYLPHENIDATE HYDROCHLORIDE) [Concomitant]
     Active Substance: METHYLPHENIDATE HYDROCHLORIDE
  2. VELCADE [Suspect]
     Active Substance: BORTEZOMIB
     Indication: PLASMA CELL MYELOMA
     Route: 058
     Dates: start: 20140317
  3. DEXAMETHASONE (DEXAMETHASONE) [Concomitant]
     Active Substance: DEXAMETHASONE
  4. ZYPREXA [Concomitant]
     Active Substance: OLANZAPINE
  5. ADRIAMYCIN [Suspect]
     Active Substance: DOXORUBICIN HYDROCHLORIDE
     Indication: PLASMA CELL MYELOMA
     Dosage: 7.2 MG/M2 4  DAYS PER CYCLE
     Route: 042
     Dates: start: 20140614
  6. CYCLOPHOSPHAMIDE (CYCLOPHOSPHAMIDE) [Concomitant]
     Active Substance: CYCLOPHOSPHAMIDE
  7. DECADRON [Suspect]
     Active Substance: DEXAMETHASONE
     Indication: PLASMA CELL MYELOMA
     Dates: start: 20140614
  8. BORTEZOMIB (BORTEZOMIB) [Concomitant]
     Active Substance: BORTEZOMIB

REACTIONS (2)
  - Disease recurrence [None]
  - Cancer pain [None]

NARRATIVE: CASE EVENT DATE: 2014
